FAERS Safety Report 18472838 (Version 1)
Quarter: 2020Q4

REPORT INFORMATION
  Report Type: Spontaneous
  Country: US (occurrence: US)
  Receive Date: 20201105
  Receipt Date: 20201105
  Transmission Date: 20210114
  Serious: Yes (Hospitalization)
  Sender: FDA-Public Use
  Company Number: None

PATIENT
  Age: 69 Year
  Sex: Female

DRUGS (11)
  1. ALENDRONATE [Concomitant]
     Active Substance: ALENDRONATE SODIUM
  2. OMPRAZOLE [Concomitant]
     Active Substance: OMEPRAZOLE
  3. SPIRONOLACT [Concomitant]
     Active Substance: SPIRONOLACTONE
  4. WIXEL INHUB [Concomitant]
  5. INVOKANA [Concomitant]
     Active Substance: CANAGLIFLOZIN
  6. METFORMIN [Concomitant]
     Active Substance: METFORMIN HYDROCHLORIDE
  7. ESBRIET [Suspect]
     Active Substance: PIRFENIDONE
     Indication: IDIOPATHIC PULMONARY FIBROSIS
  8. FUROSEMIDE. [Concomitant]
     Active Substance: FUROSEMIDE
  9. BREO ELLIPTA INH [Concomitant]
  10. POT CL MIRCO [Concomitant]
  11. AYR SALINE [Concomitant]
     Active Substance: SODIUM CHLORIDE

REACTIONS (1)
  - Dyspnoea [None]

NARRATIVE: CASE EVENT DATE: 20201103
